FAERS Safety Report 8797864 (Version 3)
Quarter: 2014Q3

REPORT INFORMATION
  Report Type: Spontaneous
  Country: US (occurrence: US)
  Receive Date: 20120919
  Receipt Date: 20140819
  Transmission Date: 20150326
  Serious: Yes (Hospitalization)
  Sender: FDA-Public Use
  Company Number: US-US-EMD SERONO, INC.-7160696

PATIENT
  Age: 65 Year
  Sex: Female

DRUGS (1)
  1. REBIF [Suspect]
     Active Substance: INTERFERON BETA-1A
     Indication: MULTIPLE SCLEROSIS
     Route: 058
     Dates: start: 20110628

REACTIONS (9)
  - Pelvic fracture [Unknown]
  - Contusion [Unknown]
  - Road traffic accident [Unknown]
  - Headache [Not Recovered/Not Resolved]
  - Injection site bruising [Unknown]
  - Chills [Not Recovered/Not Resolved]
  - Peroneal nerve palsy [Not Recovered/Not Resolved]
  - Injection site pain [Unknown]
  - Hemiparesis [Unknown]

NARRATIVE: CASE EVENT DATE: 20120521
